FAERS Safety Report 21028261 (Version 1)
Quarter: 2022Q2

REPORT INFORMATION
  Report Type: Spontaneous
  Country: BE (occurrence: BE)
  Receive Date: 20220630
  Receipt Date: 20220630
  Transmission Date: 20220721
  Serious: Yes (Other)
  Sender: FDA-Public Use
  Company Number: BE-MACLEODS PHARMACEUTICALS US LTD-MAC2022036258

PATIENT

DRUGS (1)
  1. TRIAMCINOLONE [Suspect]
     Active Substance: TRIAMCINOLONE
     Indication: Sciatica
     Dosage: 60 MILLIGRAM, SINGLE, LOW-DOSE INJECTION
     Route: 008

REACTIONS (2)
  - Cushing^s syndrome [Recovered/Resolved]
  - Myopathy [Recovered/Resolved]
